FAERS Safety Report 6242979-1 (Version None)
Quarter: 2009Q2

REPORT INFORMATION
  Report Type: 
  Country: None (occurrence: None)
  Receive Date: 20090624
  Receipt Date: 20090616
  Transmission Date: 20091009
  Serious: Yes (Other)
  Sender: FDA-Public Use
  Company Number: US-BAYER-200915177NA

PATIENT
  Age: 55 Year
  Sex: Male
  Weight: 102 kg

DRUGS (7)
  1. LEVITRA [Suspect]
     Indication: ERECTILE DYSFUNCTION
     Dosage: 1/2 TAB/DAY FOR 2 DAYS
     Dates: start: 20090220, end: 20090221
  2. ASPIRIN [Suspect]
     Indication: DRUG USE FOR UNKNOWN INDICATION
     Dosage: LOW DOSE
  3. PLAVIX [Suspect]
     Indication: DRUG USE FOR UNKNOWN INDICATION
  4. FINASTERIDE [Concomitant]
     Dates: start: 20060501
  5. SIMVASTATIN [Concomitant]
     Dates: start: 20060501
  6. LISINOPRIL [Concomitant]
     Dates: start: 20060501
  7. METOPROLOL SUCCINATE [Concomitant]
     Dates: start: 20060501

REACTIONS (1)
  - HAEMATOSPERMIA [None]
